FAERS Safety Report 7427653-8 (Version None)
Quarter: 2011Q1

REPORT INFORMATION
  Report Type: 
  Country: None (occurrence: None)
  Receive Date: 20110302
  Receipt Date: 20110118
  Transmission Date: 20110831
  Serious: No
  Sender: FDA-Public Use
  Company Number: 026345

PATIENT
  Sex: Female

DRUGS (4)
  1. VIVELLE [Concomitant]
  2. CYMBALTA [Concomitant]
  3. NEXIUM /01479303/ [Concomitant]
  4. CIMZIA [Suspect]
     Indication: CROHN'S DISEASE
     Dosage: (400 MG 1X/MONTH SUBCUTANEOUS)
     Route: 058
     Dates: start: 20101207

REACTIONS (7)
  - THERAPEUTIC RESPONSE DECREASED [None]
  - STAPHYLOCOCCAL INFECTION [None]
  - MUSCULOSKELETAL DISCOMFORT [None]
  - FREQUENT BOWEL MOVEMENTS [None]
  - SKIN DISORDER [None]
  - TINEA PEDIS [None]
  - PAIN IN EXTREMITY [None]
